FAERS Safety Report 6407900-1 (Version None)
Quarter: 2009Q4

REPORT INFORMATION
  Report Type: 
  Country: None (occurrence: None)
  Receive Date: 20091016
  Receipt Date: 20091005
  Transmission Date: 20100525
  Serious: Yes (Hospitalization)
  Sender: FDA-Public Use
  Company Number: PAR_03215_2009

PATIENT
  Age: 61 Year
  Sex: Male

DRUGS (2)
  1. IBUPROFEN [Suspect]
     Indication: ABDOMINAL PAIN UPPER
     Dosage: (DF)
     Dates: start: 20010401
  2. ALKA-SELTZER /00002701/ (ALKA SELTZER) (NOT SPECIFIED) [Suspect]
     Indication: ABDOMINAL PAIN UPPER
     Dosage: (DF ORAL)
     Route: 048
     Dates: start: 20010401

REACTIONS (1)
  - DUODENAL ULCER HAEMORRHAGE [None]
